FAERS Safety Report 11424585 (Version 1)
Quarter: 2015Q3

REPORT INFORMATION
  Report Type: Spontaneous
  Country: US (occurrence: US)
  Receive Date: 20150827
  Receipt Date: 20150827
  Transmission Date: 20151125
  Serious: No
  Sender: FDA-Public Use
  Company Number: US-GUERBET LLC-1041438

PATIENT
  Age: 69 Year
  Sex: Female

DRUGS (2)
  1. OXILAN [Suspect]
     Active Substance: IOXILAN
     Indication: COMPUTERISED TOMOGRAM PELVIS
     Route: 042
  2. OXILAN [Suspect]
     Active Substance: IOXILAN
     Indication: COMPUTERISED TOMOGRAM ABDOMEN
     Route: 042

REACTIONS (1)
  - Injection site extravasation [Recovered/Resolved with Sequelae]
